FAERS Safety Report 24604127 (Version 1)
Quarter: 2024Q4

REPORT INFORMATION
  Report Type: Report from Study
  Country: US (occurrence: US)
  Receive Date: 20241111
  Receipt Date: 20241111
  Transmission Date: 20250114
  Serious: Yes (Hospitalization)
  Sender: PACIRA
  Company Number: US-ORG100016242-2024000647

PATIENT
  Age: 66 Year
  Sex: Male

DRUGS (1)
  1. ZILRETTA [Suspect]
     Active Substance: TRIAMCINOLONE ACETONIDE
     Indication: Osteoarthritis
     Dosage: 32MG, BOTH KNEES
     Route: 065

REACTIONS (2)
  - Hospitalisation [Unknown]
  - Drug effect less than expected [Unknown]
